FAERS Safety Report 7177095 (Version 4)
Quarter: 2014Q3

REPORT INFORMATION
  Report Type: Report from Study
  Country: US (occurrence: US)
  Receive Date: 20091113
  Receipt Date: 20140813
  Transmission Date: 20150326
  Serious: Yes (Hospitalization, Other)
  Sender: FDA-Public Use
  Company Number: US-ELI_LILLY_AND_COMPANY-US200911001045

PATIENT
  Age: 57 Year
  Sex: Female

DRUGS (17)
  1. VITAMIN C [Concomitant]
     Active Substance: ASCORBIC ACID
  2. FUROSEMIDE. [Concomitant]
     Active Substance: FUROSEMIDE
     Dosage: UNK, AS NEEDED
  3. ACTONEL [Concomitant]
     Active Substance: RISEDRONATE SODIUM
     Dosage: 35 MG, WEEKLY (1/W)
  4. KLOR-CON [Concomitant]
     Active Substance: POTASSIUM CHLORIDE
     Dosage: 10 MEQ, DAILY (1/D)
  5. CIPROFLOXACIN. [Concomitant]
     Active Substance: CIPROFLOXACIN
     Indication: CYSTITIS
     Dosage: UNK, UNKNOWN
     Route: 065
  6. EFFEXOR [Concomitant]
     Active Substance: VENLAFAXINE HYDROCHLORIDE
     Dosage: 225 MG, EACH EVENING
  7. CALCIUM [Concomitant]
     Active Substance: CALCIUM
  8. DULOXETINE HYDROCHLORIDE. [Suspect]
     Active Substance: DULOXETINE HYDROCHLORIDE
     Indication: DEPRESSION
     Dosage: 90 MG, QD
     Route: 065
     Dates: start: 2008
  9. TRAZODONE HYDROCHLORIDE. [Concomitant]
     Active Substance: TRAZODONE HYDROCHLORIDE
     Dosage: 150 MG, EACH EVENING
  10. AMLODIPINE [Concomitant]
     Active Substance: AMLODIPINE BESYLATE
     Dosage: 5 MG, DAILY (1/D)
  11. NASONEX [Concomitant]
     Active Substance: MOMETASONE FUROATE
  12. VITAMIN B [Concomitant]
     Active Substance: VITAMIN B
  13. IRON [Concomitant]
     Active Substance: IRON
     Route: 048
  14. ALCOHOL. [Concomitant]
     Active Substance: ALCOHOL
     Dosage: UNK, DAILY (1/D)
  15. CELEBREX [Suspect]
     Active Substance: CELECOXIB
     Indication: PRODUCT USED FOR UNKNOWN INDICATION
     Dosage: UNK, UNKNOWN
     Route: 065
  16. METOPROLOL [Concomitant]
     Active Substance: METOPROLOL
     Dosage: 25 MG, 2/D
  17. NEXIUM [Concomitant]
     Active Substance: ESOMEPRAZOLE MAGNESIUM
     Dosage: 40 MG, DAILY (1/D)

REACTIONS (12)
  - Cystitis [Not Recovered/Not Resolved]
  - Haemorrhage [Unknown]
  - Ulcer haemorrhage [Recovered/Resolved]
  - Atrial fibrillation [Unknown]
  - Blood urine present [Unknown]
  - Renal pain [Unknown]
  - Therapeutic response decreased [Unknown]
  - Chromaturia [Unknown]
  - Alcohol use [Not Recovered/Not Resolved]
  - Product outer packaging issue [Unknown]
  - Drug interaction [Unknown]
  - Abnormal behaviour [Unknown]

NARRATIVE: CASE EVENT DATE: 2008
